FAERS Safety Report 5993177-8 (Version None)
Quarter: 2008Q4

REPORT INFORMATION
  Report Type: 
  Country: None (occurrence: None)
  Receive Date: 20081212
  Receipt Date: 20081201
  Transmission Date: 20090506
  Serious: Yes (Hospitalization, Disabling)
  Sender: FDA-Public Use
  Company Number: US-SANOFI-SYNTHELABO-A03200803265

PATIENT
  Sex: Female
  Weight: 63.5 kg

DRUGS (7)
  1. AMBIEN [Suspect]
     Indication: INSOMNIA
     Dosage: 5 MG AT BEDTIME AS NEEDED
     Route: 048
     Dates: start: 20050101
  2. AMBIEN [Suspect]
     Dosage: HALVED THE PILL, TAKING 5 MG (HALF OF 10 MG TABLET)
     Route: 048
  3. LORTAB [Concomitant]
     Indication: DRUG USE FOR UNKNOWN INDICATION
     Dosage: TAKE AS NEEDED FOR PAIN
     Route: 048
  4. VITAMIN B-12 [Concomitant]
     Indication: DRUG USE FOR UNKNOWN INDICATION
     Dosage: UNK
     Route: 065
  5. COCAINE [Concomitant]
     Indication: DRUG USE FOR UNKNOWN INDICATION
     Dosage: UNK
     Route: 065
     Dates: end: 20070831
  6. MARIJUANA [Concomitant]
     Indication: DRUG USE FOR UNKNOWN INDICATION
     Dosage: UNK
     Route: 065
     Dates: end: 20070831
  7. ALCOHOL [Concomitant]
     Indication: DRUG USE FOR UNKNOWN INDICATION
     Dosage: UNK
     Route: 048
     Dates: end: 20070831

REACTIONS (14)
  - ACETABULUM FRACTURE [None]
  - ARTHRITIS [None]
  - CONFUSIONAL STATE [None]
  - DRUG INEFFECTIVE [None]
  - FALL [None]
  - HAEMORRHAGIC ANAEMIA [None]
  - INTENTIONAL DRUG MISUSE [None]
  - INTERNAL INJURY [None]
  - LUMBAR VERTEBRAL FRACTURE [None]
  - LUNG INJURY [None]
  - PNEUMOTHORAX [None]
  - PUBIC RAMI FRACTURE [None]
  - RIB FRACTURE [None]
  - SOMNAMBULISM [None]
